FAERS Safety Report 4948209-2 (Version None)
Quarter: 2006Q1

REPORT INFORMATION
  Report Type: 
  Country: None (occurrence: None)
  Receive Date: 20060320
  Receipt Date: 20060307
  Transmission Date: 20060701
  Serious: Yes (Hospitalization)
  Sender: FDA-Public Use
  Company Number: PHBS2006EC03576

PATIENT
  Age: 24 Year
  Sex: Male

DRUGS (2)
  1. ALCOHOL [Suspect]
  2. TEGRETOL [Suspect]
     Indication: EPILEPSY
     Dosage: 80 MG/DAY
     Route: 048
     Dates: start: 19960101

REACTIONS (4)
  - ALCOHOL USE [None]
  - ROAD TRAFFIC ACCIDENT [None]
  - SPINAL FRACTURE [None]
  - SPINAL OPERATION [None]
